FAERS Safety Report 8044472-2 (Version None)
Quarter: 2012Q1

REPORT INFORMATION
  Report Type: 
  Country: None (occurrence: None)
  Receive Date: 20120113
  Receipt Date: 20120114
  Transmission Date: 20120608
  Serious: Yes (Death)
  Sender: FDA-Public Use
  Company Number: IR-JNJFOC-20120104231

PATIENT
  Age: 15 Year
  Sex: Male
  Weight: 41 kg

DRUGS (8)
  1. DOXORUBICIN HCL [Suspect]
     Indication: ACUTE LYMPHOCYTIC LEUKAEMIA
     Route: 042
     Dates: start: 20111113
  2. VELCADE [Suspect]
     Route: 065
     Dates: end: 20111125
  3. VINCRISTINE [Suspect]
     Indication: ACUTE LYMPHOCYTIC LEUKAEMIA
     Route: 065
     Dates: start: 20111113
  4. VELCADE [Suspect]
     Route: 065
  5. PEG-ASPARAGINASE [Suspect]
     Indication: ACUTE LYMPHOCYTIC LEUKAEMIA
     Route: 065
     Dates: start: 20111114
  6. VELCADE [Suspect]
     Route: 065
  7. VELCADE [Suspect]
     Indication: ACUTE LYMPHOCYTIC LEUKAEMIA
     Route: 065
     Dates: start: 20111113
  8. DEXAMETHASONE TAB [Suspect]
     Indication: ACUTE LYMPHOCYTIC LEUKAEMIA
     Route: 065
     Dates: start: 20111113

REACTIONS (3)
  - NEUROPATHY PERIPHERAL [None]
  - OFF LABEL USE [None]
  - ACUTE LYMPHOCYTIC LEUKAEMIA [None]
